FAERS Safety Report 8854802 (Version 1)
Quarter: 2012Q4

REPORT INFORMATION
  Report Type: 
  Country: NL (occurrence: NL)
  Receive Date: 20121023
  Receipt Date: 20121023
  Transmission Date: 20130627
  Serious: Yes (Other)
  Sender: FDA-Public Use
  Company Number: PHHY2012NL094438

PATIENT
  Age: 66 Year
  Sex: Female

DRUGS (4)
  1. ZOMETA [Suspect]
     Indication: OSTEOPOROSIS
     Dosage: 4 mg/00ml once per 364 days
     Route: 042
  2. ZOMETA [Suspect]
     Dosage: 4 mg/100 ml once per 364 days
     Route: 042
     Dates: start: 20111010
  3. ZOMETA [Suspect]
     Dosage: 4 mg/100 ml once per 364 days
     Route: 042
     Dates: start: 20111018
  4. ANTIBIOTICS [Concomitant]

REACTIONS (6)
  - Vasculitis [Unknown]
  - Infection [Unknown]
  - Injury [Unknown]
  - Oedema peripheral [Recovered/Resolved]
  - Pyrexia [Recovered/Resolved]
  - Chills [Recovered/Resolved]
